FAERS Safety Report 6856022-4 (Version None)
Quarter: 2010Q3

REPORT INFORMATION
  Report Type: 
  Country: None (occurrence: None)
  Receive Date: 20100719
  Receipt Date: 20100714
  Transmission Date: 20110219
  Serious: Yes (Hospitalization)
  Sender: FDA-Public Use
  Company Number: US-BRISTOL-MYERS SQUIBB COMPANY-15193618

PATIENT
  Age: 26 Year
  Sex: Female

DRUGS (9)
  1. REYATAZ [Suspect]
     Indication: HIV INFECTION
     Dates: start: 20091014, end: 20100108
  2. COMBIVIR [Suspect]
     Indication: HIV INFECTION
     Dates: start: 20091014, end: 20100108
  3. NORVIR [Suspect]
     Indication: HIV INFECTION
     Dates: start: 20091014, end: 20100108
  4. TRUVADA [Suspect]
     Indication: HIV INFECTION
     Dates: start: 20100108
  5. PANADO [Concomitant]
     Indication: HEADACHE
     Dates: start: 20091112
  6. MULTI-VITAMIN [Concomitant]
     Dates: start: 20100108
  7. ADCO-DOL [Concomitant]
     Indication: ANALGESIC THERAPY
     Dates: start: 20100317, end: 20100501
  8. CALCIUM + VITAMIN D [Concomitant]
     Dates: start: 20100501
  9. VITAMIN C [Concomitant]
     Dates: start: 20100501

REACTIONS (1)
  - ANXIETY [None]
